FAERS Safety Report 9167558 (Version 2)
Quarter: 2013Q2

REPORT INFORMATION
  Report Type: Spontaneous
  Country: US (occurrence: US)
  Receive Date: 20130318
  Receipt Date: 20130522
  Transmission Date: 20140414
  Serious: Yes (Hospitalization)
  Sender: FDA-Public Use
  Company Number: US-JNJFOC-20130302186

PATIENT
  Sex: 0

DRUGS (3)
  1. NICOTINE POLACRILEX [Suspect]
     Indication: SMOKING CESSATION THERAPY
     Dosage: 2 OR 4MG, FOR 12 WEEKS POSTQUIT
     Route: 048
  2. NICOTINE POLACRILEX [Suspect]
     Indication: SMOKING CESSATION THERAPY
     Dosage: 2 OR 4MG, FOR 12 WEEKS POSTQUIT
     Route: 048
  3. WELLBUTRIN [Suspect]
     Indication: SMOKING CESSATION THERAPY
     Dosage: 1 WEEK PREQUIT AND 8 WEEKS POSTQUIT
     Route: 065

REACTIONS (1)
  - Convulsion [Unknown]
